FAERS Safety Report 9457951 (Version 1)
Quarter: 2013Q3

REPORT INFORMATION
  Report Type: Spontaneous
  Country: BE (occurrence: None)
  Receive Date: 20130809
  Receipt Date: 20130809
  Transmission Date: 20140515
  Serious: Yes (Other)
  Sender: FDA-Public Use
  Company Number: 2013AP007147

PATIENT
  Sex: 0

DRUGS (2)
  1. ALENDRONATE (ALENDRONATE SODIUM) [Suspect]
  2. PAMIDRONATE [Suspect]

REACTIONS (3)
  - Conjunctivitis [None]
  - Uveitis [None]
  - Toxic optic neuropathy [None]
